FAERS Safety Report 8289614-9 (Version None)
Quarter: 2012Q2

REPORT INFORMATION
  Report Type: 
  Country: None (occurrence: None)
  Receive Date: 20120417
  Receipt Date: 20120406
  Transmission Date: 20120825
  Serious: Yes (Hospitalization)
  Sender: FDA-Public Use
  Company Number: FR-VERTEX PHARMACEUTICALS INC.-000000000000000414

PATIENT
  Sex: Female

DRUGS (9)
  1. FERROUS SULFATE TAB [Concomitant]
  2. PEGASYS [Concomitant]
     Indication: HEPATITIS C
     Route: 058
     Dates: start: 20111101
  3. PERINDOPRIL ERBUMINE [Concomitant]
  4. FUNGIZONE [Concomitant]
  5. COPEGUS [Concomitant]
     Indication: HEPATITIS C
     Route: 048
     Dates: start: 20111101, end: 20120312
  6. TENORMIN [Concomitant]
     Indication: HYPERTENSION
     Dates: start: 20000101
  7. LYRICA [Concomitant]
  8. INCIVO (TELAPREVIR) [Suspect]
     Indication: HEPATITIS C
     Dosage: DOSAGE FORM: TABLET
     Route: 048
     Dates: start: 20111201, end: 20120229
  9. PEGASYS [Concomitant]
     Route: 058
     Dates: start: 20120209

REACTIONS (1)
  - PANCYTOPENIA [None]
